FAERS Safety Report 7792921-7 (Version None)
Quarter: 2011Q4

REPORT INFORMATION
  Report Type: 
  Country: None (occurrence: None)
  Receive Date: 20111003
  Receipt Date: 20110923
  Transmission Date: 20120403
  Serious: Yes (Other)
  Sender: FDA-Public Use
  Company Number: BR-BRISTOL-MYERS SQUIBB COMPANY-16108045

PATIENT
  Age: 82 Year
  Sex: Male

DRUGS (1)
  1. IRBESARTAN [Suspect]

REACTIONS (2)
  - CATARACT [None]
  - VISUAL IMPAIRMENT [None]
